FAERS Safety Report 8708370 (Version 2)
Quarter: 2012Q4

REPORT INFORMATION
  Report Type: 
  Country: DE (occurrence: DE)
  Receive Date: 20120806
  Receipt Date: 20121219
  Transmission Date: 20130627
  Serious: Yes (Life-Threatening)
  Sender: FDA-Public Use
  Company Number: DE-COVIDIEN/TYCO HEALTHCARE/MALLINCKRODT-T201202912

PATIENT
  Age: 48 Year
  Sex: Male
  Weight: 83 kg

DRUGS (1)
  1. OPTIRAY [Suspect]
     Indication: ANGIOGRAM
     Dosage: 30 ml, single
     Route: 013
     Dates: start: 20120210, end: 20120210

REACTIONS (2)
  - Cardiac arrest [Recovered/Resolved]
  - Apnoea [Recovered/Resolved]
